FAERS Safety Report 11991121 (Version 2)
Quarter: 2016Q3

REPORT INFORMATION
  Report Type: Spontaneous
  Country: US (occurrence: US)
  Receive Date: 20160203
  Receipt Date: 20160929
  Transmission Date: 20161109
  Serious: No
  Sender: FDA-Public Use
  Company Number: US-JNJFOC-20160102784

PATIENT
  Sex: Male

DRUGS (2)
  1. RISPERDAL [Suspect]
     Active Substance: RISPERIDONE
     Indication: SLEEP DISORDER
     Dosage: VARYING DOSES OF 0.5 TO 4 MG
     Route: 048
     Dates: start: 2004, end: 201306
  2. INVEGA [Suspect]
     Active Substance: PALIPERIDONE
     Indication: SLEEP DISORDER
     Route: 048
     Dates: start: 200704, end: 200706

REACTIONS (3)
  - Off label use [Unknown]
  - Product use issue [Unknown]
  - Gynaecomastia [Unknown]

NARRATIVE: CASE EVENT DATE: 2009
